FAERS Safety Report 15297110 (Version 1)
Quarter: 2018Q3

REPORT INFORMATION
  Report Type: Spontaneous
  Country: IT (occurrence: IT)
  Receive Date: 20180820
  Receipt Date: 20180820
  Transmission Date: 20181010
  Serious: Yes (Other)
  Sender: FDA-Public Use
  Company Number: IT-SA-2018SA217647

PATIENT
  Age: 69 Year
  Sex: Female
  Weight: 36 kg

DRUGS (4)
  1. DIFMETRE [Concomitant]
     Active Substance: CAFFEINE\INDOMETHACIN\PROCHLORPERAZINE MALEATE
     Dosage: UNKNOWN
     Route: 054
  2. XANAX [Concomitant]
     Active Substance: ALPRAZOLAM
     Dosage: 8 GTT DROPS, QD
     Route: 048
  3. DEBRIDAT [TRIMEBUTINE] [Concomitant]
     Dosage: 1 DF, QD
     Route: 048
  4. STILNOX [Suspect]
     Active Substance: ZOLPIDEM TARTRATE
     Indication: INSOMNIA
     Dosage: 5 MG, QD
     Route: 048
     Dates: start: 20180630, end: 20180724

REACTIONS (5)
  - Dysentery [Not Recovered/Not Resolved]
  - Catarrh [Not Recovered/Not Resolved]
  - Chest discomfort [Not Recovered/Not Resolved]
  - Rhinorrhoea [Not Recovered/Not Resolved]
  - Chest pain [Not Recovered/Not Resolved]

NARRATIVE: CASE EVENT DATE: 20180703
